FAERS Safety Report 7739529-7 (Version None)
Quarter: 2011Q3

REPORT INFORMATION
  Report Type: 
  Country: None (occurrence: None)
  Receive Date: 20110909
  Receipt Date: 20110502
  Transmission Date: 20111222
  Serious: Yes (Death)
  Sender: FDA-Public Use
  Company Number: US-ASTRAZENECA-2011SE24946

PATIENT
  Age: 2 Year
  Sex: Female

DRUGS (1)
  1. PROPOFOL [Suspect]
     Indication: SEDATION
     Dosage: 10 MG/KG PER HOUR
     Route: 042

REACTIONS (2)
  - PROPOFOL INFUSION SYNDROME [None]
  - MULTI-ORGAN FAILURE [None]
